FAERS Safety Report 22075419 (Version 1)
Quarter: 2023Q1

REPORT INFORMATION
  Report Type: Spontaneous
  Country: US (occurrence: None)
  Receive Date: 20230307
  Receipt Date: 20230307
  Transmission Date: 20230417
  Serious: Yes (Hospitalization)
  Sender: FDA-Public Use
  Company Number: None

PATIENT
  Age: 83 Year
  Sex: Male
  Weight: 63.5 kg

DRUGS (16)
  1. PROCRIT [Suspect]
     Active Substance: ERYTHROPOIETIN
     Indication: Myelodysplastic syndrome
     Dosage: FREQUENCY : WEEKLY;?
     Route: 058
  2. TRICOR [Concomitant]
  3. FUROSEMIDE [Concomitant]
  4. AMARYL [Concomitant]
  5. IPRATROPOIUM-ALBUTEROL [Concomitant]
  6. ATORVASTATIN [Concomitant]
  7. JARDIANCE [Concomitant]
  8. ALBUTEROL SULFATE HFA [Concomitant]
  9. FINASTERIDE [Concomitant]
  10. SPIRIVA [Concomitant]
  11. CEQUA [Concomitant]
  12. HYDREA [Concomitant]
  13. AMIODARONE [Concomitant]
  14. METFORMIN [Concomitant]
  15. GIMEPIRIDE [Concomitant]
  16. ENTRESTO [Concomitant]

REACTIONS (1)
  - Intensive care [None]
